FAERS Safety Report 4872909-6 (Version None)
Quarter: 2006Q1

REPORT INFORMATION
  Report Type: 
  Country: None (occurrence: None)
  Receive Date: 20060105
  Receipt Date: 20050104
  Transmission Date: 20060701
  Serious: Yes (Other)
  Sender: FDA-Public Use
  Company Number: US-BRISTOL-MYERS SQUIBB COMPANY-12817979

PATIENT
  Age: 40 Year
  Sex: Female

DRUGS (9)
  1. SERZONE [Suspect]
     Indication: DEPRESSION
     Dates: start: 19980101, end: 20000201
  2. TRAZODONE HCL [Concomitant]
  3. DIAZEPAM [Concomitant]
  4. ZOLOFT [Concomitant]
  5. RISPERIDONE [Concomitant]
  6. BUSPAR [Concomitant]
  7. LORAZEPAM [Concomitant]
  8. ZYRTEC [Concomitant]
  9. MOBAN [Concomitant]

REACTIONS (3)
  - DEPRESSION [None]
  - HEPATITIS [None]
  - LIVER DISORDER [None]
